FAERS Safety Report 11467406 (Version 1)
Quarter: 2015Q3

REPORT INFORMATION
  Report Type: Spontaneous
  Country: FI (occurrence: FI)
  Receive Date: 20150908
  Receipt Date: 20150908
  Transmission Date: 20151125
  Serious: Yes (Hospitalization, Other)
  Sender: FDA-Public Use
  Company Number: FI-ROCHE-1630545

PATIENT
  Age: 82 Year
  Sex: Female

DRUGS (3)
  1. MABTHERA [Suspect]
     Active Substance: RITUXIMAB
     Route: 042
     Dates: start: 20150811
  2. MABTHERA [Suspect]
     Active Substance: RITUXIMAB
     Indication: RHEUMATOID ARTHRITIS
     Route: 042
     Dates: start: 2010, end: 2014
  3. MABTHERA [Suspect]
     Active Substance: RITUXIMAB
     Route: 042
     Dates: start: 20150825

REACTIONS (6)
  - Bacterial infection [Unknown]
  - Skin operation [Recovered/Resolved]
  - Skin necrosis [Unknown]
  - Haematoma [Unknown]
  - Nodule [Recovered/Resolved]
  - Mass excision [Recovered/Resolved]

NARRATIVE: CASE EVENT DATE: 20150826
